FAERS Safety Report 7904571 (Version 5)
Quarter: 2012Q4

REPORT INFORMATION
  Report Type: Report from Study
  Country: US (occurrence: US)
  Receive Date: 20110419
  Receipt Date: 20121228
  Transmission Date: 20130627
  Serious: Yes (Hospitalization, Other)
  Sender: FDA-Public Use
  Company Number: PHHY2011US31843

PATIENT
  Age: 5 Year
  Sex: Male
  Weight: 26.14 kg

DRUGS (4)
  1. ICL670A [Suspect]
     Dosage: 625 mg daily
     Route: 048
     Dates: start: 20091110
  2. ICL670A [Suspect]
     Dosage: 750 mg daily
     Route: 048
     Dates: start: 20100826, end: 20110321
  3. POLYMYXIN [Concomitant]
     Dosage: UNK UKN, UNK
     Dates: start: 20100728, end: 20100731
  4. AMOXICILLIN [Concomitant]
     Dosage: 480 mg every 12 H
     Route: 048
     Dates: start: 20100728, end: 20100806

REACTIONS (9)
  - Acute chest syndrome [Recovered/Resolved]
  - Respiratory disorder [Recovered/Resolved]
  - Pneumonia [Recovered/Resolved]
  - Lung infiltration [Recovered/Resolved]
  - Asthma [Unknown]
  - Otitis media [Not Recovered/Not Resolved]
  - Cough [Not Recovered/Not Resolved]
  - Pyrexia [Not Recovered/Not Resolved]
  - Wheezing [Unknown]
